FAERS Safety Report 10143778 (Version 1)
Quarter: 2014Q2

REPORT INFORMATION
  Report Type: Spontaneous
  Country: CN (occurrence: None)
  Receive Date: 20140428
  Receipt Date: 20140428
  Transmission Date: 20141212
  Serious: Yes (Death)
  Sender: FDA-Public Use
  Company Number: 2014P1003394

PATIENT
  Age: 16 Year
  Sex: Female

DRUGS (2)
  1. PREDNISONE [Suspect]
  2. MYCOPHENOLATE MOFETIL [Suspect]

REACTIONS (1)
  - Pneumonia [None]
